FAERS Safety Report 9360727 (Version 1)
Quarter: 2013Q2

REPORT INFORMATION
  Report Type: Spontaneous
  Country: US (occurrence: None)
  Receive Date: 20130620
  Receipt Date: 20130620
  Transmission Date: 20140414
  Serious: Yes (Life-Threatening, Hospitalization, Disabling, Other)
  Sender: FDA-Public Use
  Company Number: None

PATIENT
  Age: 38 Year
  Sex: Male
  Weight: 123.38 kg

DRUGS (2)
  1. DEPAKOTE [Suspect]
     Indication: IMPULSIVE BEHAVIOUR
     Dosage: 1 PILL
     Dates: start: 201112
  2. LATUDA 80MG [Concomitant]

REACTIONS (6)
  - Aggression [None]
  - Obesity [None]
  - Alopecia [None]
  - Tooth discolouration [None]
  - Tremor [None]
  - Physical assault [None]
